FAERS Safety Report 7337511-5 (Version None)
Quarter: 2011Q1

REPORT INFORMATION
  Report Type: 
  Country: None (occurrence: None)
  Receive Date: 20110308
  Receipt Date: 20110303
  Transmission Date: 20110831
  Serious: Yes (Death, Other)
  Sender: FDA-Public Use
  Company Number: CN-GENZYME-FLUD-1000830

PATIENT
  Age: 66 Year
  Sex: Female

DRUGS (1)
  1. FLUDARA [Suspect]
     Indication: B-CELL LYMPHOMA
     Dosage: 5 CYCLES
     Route: 065

REACTIONS (3)
  - DEATH [None]
  - WHITE BLOOD CELL COUNT DECREASED [None]
  - INFECTION [None]
